FAERS Safety Report 8847381 (Version 1)
Quarter: 2012Q4

REPORT INFORMATION
  Report Type: 
  Country: BR (occurrence: BR)
  Receive Date: 20121018
  Receipt Date: 20121018
  Transmission Date: 20130627
  Serious: Yes (Other)
  Sender: FDA-Public Use
  Company Number: BR-ELI_LILLY_AND_COMPANY-BR201210001922

PATIENT
  Age: 69 None
  Sex: Female
  Weight: 60 kg

DRUGS (5)
  1. CYMBALTA [Suspect]
     Indication: DEPRESSION
     Dosage: 60 mg, qd
     Route: 048
     Dates: start: 2007, end: 201104
  2. CYMBALTA [Suspect]
     Dosage: 30 mg, qd
     Route: 048
     Dates: start: 201104
  3. VASOPRIL [Concomitant]
     Indication: HYPERTENSION
     Dosage: 10 mg, qd
     Route: 065
  4. DILACORON [Concomitant]
     Indication: TACHYCARDIA
     Dosage: 120 mg, qd
     Route: 065
  5. RIVOTRIL [Concomitant]
     Indication: SLEEP DISORDER
     Dosage: 2 mg, qd

REACTIONS (13)
  - Deep vein thrombosis [Recovered/Resolved]
  - Head discomfort [Not Recovered/Not Resolved]
  - Retching [Unknown]
  - Urinary tract infection [Unknown]
  - Photopsia [Recovered/Resolved]
  - Balance disorder [Recovered/Resolved]
  - Intentional drug misuse [Unknown]
  - Headache [Recovered/Resolved]
  - Pain in extremity [Recovered/Resolved]
  - Nausea [Not Recovered/Not Resolved]
  - Paraesthesia [Recovered/Resolved]
  - Headache [Not Recovered/Not Resolved]
  - Drug withdrawal syndrome [Recovered/Resolved]
